FAERS Safety Report 19628567 (Version 1)
Quarter: 2021Q3

REPORT INFORMATION
  Report Type: Spontaneous
  Country: US (occurrence: US)
  Receive Date: 20210729
  Receipt Date: 20210729
  Transmission Date: 20211014
  Serious: No
  Sender: FDA-Public Use
  Company Number: None

PATIENT
  Sex: Female
  Weight: 96.3 kg

DRUGS (5)
  1. SENNOSIDE [Concomitant]
     Active Substance: SENNOSIDES
  2. ONDANSETRON [Concomitant]
     Active Substance: ONDANSETRON
  3. HYDROMORPHONE [Concomitant]
     Active Substance: HYDROMORPHONE
  4. LETROZOLE. [Suspect]
     Active Substance: LETROZOLE
     Indication: CONNECTIVE TISSUE NEOPLASM
     Route: 048
  5. DIAZEPAM. [Concomitant]
     Active Substance: DIAZEPAM

REACTIONS (1)
  - Hospice care [None]
